FAERS Safety Report 5625022-4 (Version None)
Quarter: 2008Q1

REPORT INFORMATION
  Report Type: 
  Country: None (occurrence: None)
  Receive Date: 20080213
  Receipt Date: 20080201
  Transmission Date: 20080703
  Serious: Yes (Other)
  Sender: FDA-Public Use
  Company Number: US-PFIZER INC-2007102951

PATIENT
  Sex: Female
  Weight: 56.7 kg

DRUGS (14)
  1. CHANTIX [Suspect]
     Indication: SMOKING CESSATION THERAPY
     Route: 048
  2. METFORMIN HCL [Concomitant]
     Route: 048
  3. DICYCLOMINE [Concomitant]
     Route: 048
  4. PROTONIX [Concomitant]
     Route: 048
  5. LEVOXYL [Concomitant]
  6. COMBIVENT [Concomitant]
  7. TEMAZEPAM [Concomitant]
  8. DIAZEPAM [Concomitant]
  9. NITROFURANTOIN [Concomitant]
  10. ZYRTEC [Concomitant]
  11. OMEPRAZOLE [Concomitant]
  12. HYDROCODONE BITARTRATE [Concomitant]
  13. LISINOPRIL [Concomitant]
  14. LYRICA [Concomitant]

REACTIONS (10)
  - BLOOD GLUCOSE INCREASED [None]
  - DIZZINESS [None]
  - DYSGEUSIA [None]
  - HEADACHE [None]
  - HYPERCHLORHYDRIA [None]
  - INFLUENZA [None]
  - INJURY [None]
  - NASOPHARYNGITIS [None]
  - NAUSEA [None]
  - UNEVALUABLE EVENT [None]
